FAERS Safety Report 10030088 (Version 2)
Quarter: 2014Q1

REPORT INFORMATION
  Report Type: Spontaneous
  Country: US (occurrence: US)
  Receive Date: 20140323
  Receipt Date: 20140323
  Transmission Date: 20141002
  Serious: No
  Sender: FDA-Public Use
  Company Number: US-ALLERGAN-1303505US

PATIENT
  Sex: Female
  Weight: 65.76 kg

DRUGS (1)
  1. LATISSE 0.03% [Suspect]
     Indication: GROWTH OF EYELASHES
     Dosage: UNK, TID
     Route: 061

REACTIONS (3)
  - Madarosis [Unknown]
  - Drug ineffective [Unknown]
  - Trichorrhexis [Unknown]
